FAERS Safety Report 9049488 (Version 1)
Quarter: 2013Q1

REPORT INFORMATION
  Report Type: Report from Study
  Country: US (occurrence: US)
  Receive Date: 20130205
  Receipt Date: 20130205
  Transmission Date: 20140127
  Serious: Yes (Other)
  Sender: FDA-Public Use
  Company Number: US-JNJFOC-20130200980

PATIENT
  Sex: Female
  Weight: 83.92 kg

DRUGS (4)
  1. REMICADE [Suspect]
     Indication: RHEUMATOID ARTHRITIS
     Route: 042
     Dates: start: 2012, end: 201210
  2. AMITRIPTYLIN [Concomitant]
  3. PREDNISONE [Concomitant]
  4. B 12 [Concomitant]

REACTIONS (3)
  - Gastrooesophageal reflux disease [Unknown]
  - Hypoaesthesia [Unknown]
  - Intervertebral disc degeneration [Not Recovered/Not Resolved]
